FAERS Safety Report 24652836 (Version 1)
Quarter: 2024Q4

REPORT INFORMATION
  Report Type: Spontaneous
  Country: CA (occurrence: CA)
  Receive Date: 20241122
  Receipt Date: 20241122
  Transmission Date: 20250115
  Serious: Yes (Hospitalization, Other)
  Sender: PFIZER
  Company Number: CA-PFIZER INC-2021336867

PATIENT
  Age: 66 Year
  Sex: Female

DRUGS (26)
  1. RUXIENCE [Suspect]
     Active Substance: RITUXIMAB-PVVR
     Indication: Rheumatoid arthritis
     Dosage: 500 MG, ON DAY 1 AND DAY 15
     Route: 042
     Dates: start: 20210518, end: 20210602
  2. RUXIENCE [Suspect]
     Active Substance: RITUXIMAB-PVVR
     Dosage: 500 MG, ON DAY 1 AND DAY 15
     Route: 042
     Dates: start: 20220426
  3. RUXIENCE [Suspect]
     Active Substance: RITUXIMAB-PVVR
     Dosage: 500 MG, ON DAY 1 AND DAY 15, EVERY 9 MONTHS
     Route: 042
     Dates: start: 20220510
  4. RUXIENCE [Suspect]
     Active Substance: RITUXIMAB-PVVR
     Dosage: 500 MG, ON DAY 1 AND DAY 15
     Route: 042
     Dates: start: 20230217
  5. RUXIENCE [Suspect]
     Active Substance: RITUXIMAB-PVVR
     Dosage: 500 MG, ON DAY 1 AND DAY 15, EVERY 9 MONTHS
     Route: 042
     Dates: start: 20230304
  6. RUXIENCE [Suspect]
     Active Substance: RITUXIMAB-PVVR
     Dosage: 500 MG, ON DAY 1 AND DAY 15
     Route: 042
     Dates: start: 20240209
  7. RUXIENCE [Suspect]
     Active Substance: RITUXIMAB-PVVR
     Dosage: 500 MG, ON DAY 1 AND DAY 15, EVERY 9 MONTHS (11 MONTHS AND 20 DAYS)
     Route: 042
     Dates: start: 20240223
  8. ALLOPURINOL [Concomitant]
     Active Substance: ALLOPURINOL
     Dosage: UNK
  9. AMLODIPINE [Concomitant]
     Active Substance: AMLODIPINE BESYLATE
     Dosage: 5 MG, 1X/DAY
     Route: 065
  10. BUPROPION [Concomitant]
     Active Substance: BUPROPION
     Dosage: UNK
  11. FLUOXETINE [Concomitant]
     Active Substance: FLUOXETINE HYDROCHLORIDE
     Dosage: 20 MG
     Route: 065
  12. FOLIC ACID [Concomitant]
     Active Substance: FOLIC ACID
     Dosage: 1 DF (DOSAGE INFORMATION NOT AVAILABLE)
  13. GABAPENTIN [Concomitant]
     Active Substance: GABAPENTIN
     Dosage: 1 DF (DOSAGE INFORMATION NOT AVAILABLE)
  14. HYDROCHLOROTHIAZIDE [Concomitant]
     Active Substance: HYDROCHLOROTHIAZIDE
     Dosage: 1 DF (DOSAGE INFORMATION NOT AVAILABLE)
  15. IRON [Concomitant]
     Active Substance: IRON
     Dosage: UNK
  16. METFORMIN [Concomitant]
     Active Substance: METFORMIN HYDROCHLORIDE
     Dosage: 1 DF (DOSAGE INFORMATION NOT AVAILABLE)
  17. NAPROXEN [Concomitant]
     Active Substance: NAPROXEN
     Dosage: 1 DF (DOSAGE INFORMATION NOT AVAILABLE)
  18. PLAQUENIL [Concomitant]
     Active Substance: HYDROXYCHLOROQUINE SULFATE
     Dosage: 200 MG, 2X/DAY (200MG TWICE DAILY)
     Route: 065
  19. POTASSIUM CHLORIDE [Concomitant]
     Active Substance: POTASSIUM CHLORIDE
     Dosage: 1 DF (DOSAGE INFORMATION NOT AVAILABLE)
  20. PREDNISONE [Concomitant]
     Active Substance: PREDNISONE
     Dosage: 3 MG
     Route: 065
  21. RABEPRAZOLE [Concomitant]
     Active Substance: RABEPRAZOLE
     Dosage: 1 DF (DOSAGE INFORMATION NOT AVAILABLE)
  22. ROSUVASTATIN [Concomitant]
     Active Substance: ROSUVASTATIN
     Dosage: UNK
  23. RAMIPRIL [Concomitant]
     Active Substance: RAMIPRIL
     Indication: Blood pressure measurement
     Dosage: UNK
  24. SULFASALAZINE [Concomitant]
     Active Substance: SULFASALAZINE
     Dosage: 1 G, 2X/DAY (1G TWICE DAILY)
     Route: 065
  25. SYNTHROID [Concomitant]
     Active Substance: LEVOTHYROXINE SODIUM
     Dosage: 1 DF (DOSAGE INFORMATION NOT AVAILABLE)
  26. TRAZODONE [Concomitant]
     Active Substance: TRAZODONE HYDROCHLORIDE
     Dosage: 1 DF (DOSAGE INFORMATION NOT AVAILABLE)

REACTIONS (4)
  - Drug abuse [Unknown]
  - Drug withdrawal syndrome [Unknown]
  - Condition aggravated [Not Recovered/Not Resolved]
  - Off label use [Unknown]

NARRATIVE: CASE EVENT DATE: 20230120
